FAERS Safety Report 18176114 (Version 2)
Quarter: 2020Q3

REPORT INFORMATION
  Report Type: Spontaneous
  Country: GB (occurrence: GB)
  Receive Date: 20200820
  Receipt Date: 20200821
  Transmission Date: 20201103
  Serious: No
  Sender: FDA-Public Use
  Company Number: GB-LEXICON PHARMACEUTICALS, INC-20-1606-00648

PATIENT
  Age: 57 Year
  Sex: Male

DRUGS (10)
  1. ONDANSETRON [Concomitant]
     Active Substance: ONDANSETRON
  2. ENOXAPARIN [Concomitant]
     Active Substance: ENOXAPARIN
  3. DEXAMETHASONE. [Concomitant]
     Active Substance: DEXAMETHASONE
  4. OMEPRAZOLE. [Concomitant]
     Active Substance: OMEPRAZOLE
  5. OXYCODONE [Concomitant]
     Active Substance: OXYCODONE
  6. XERMELO [Suspect]
     Active Substance: TELOTRISTAT ETHYL
     Indication: CARCINOID SYNDROME
     Dates: start: 20200803
  7. BUMETANIDE. [Concomitant]
     Active Substance: BUMETANIDE
  8. MIDAZOLAM. [Concomitant]
     Active Substance: MIDAZOLAM
  9. HALOPERIDOL. [Concomitant]
     Active Substance: HALOPERIDOL
  10. HYOSCINE BUTYLBROMIDE [Concomitant]
     Active Substance: BUTYLSCOPOLAMINE BROMIDE

REACTIONS (1)
  - Product use complaint [Not Recovered/Not Resolved]

NARRATIVE: CASE EVENT DATE: 20200805
